FAERS Safety Report 24080024 (Version 1)
Quarter: 2024Q3

REPORT INFORMATION
  Report Type: Spontaneous
  Country: US (occurrence: US)
  Receive Date: 20240711
  Receipt Date: 20240711
  Transmission Date: 20241017
  Serious: No
  Sender: BRISTOL MYERS SQUIBB
  Company Number: US-BRISTOL-MYERS SQUIBB COMPANY-2024-108503

PATIENT
  Age: 87 Year
  Sex: Female
  Weight: 63.41 kg

DRUGS (1)
  1. REVLIMID [Suspect]
     Active Substance: LENALIDOMIDE
     Indication: Plasma cell myeloma
     Dosage: DAILY 1-21, THEN 14 DAYS OFF
     Route: 048
     Dates: start: 20231031

REACTIONS (1)
  - Platelet count decreased [Not Recovered/Not Resolved]
